FAERS Safety Report 19917027 (Version 2)
Quarter: 2021Q4

REPORT INFORMATION
  Report Type: Spontaneous
  Country: PR (occurrence: US)
  Receive Date: 20211005
  Receipt Date: 20211117
  Transmission Date: 20220304
  Serious: Yes (Other)
  Sender: FDA-Public Use
  Company Number: PR-JNJFOC-20211000970

PATIENT
  Age: 53 Year
  Sex: Female

DRUGS (19)
  1. ELMIRON [Suspect]
     Active Substance: PENTOSAN POLYSULFATE SODIUM
     Indication: Cystitis interstitial
     Route: 048
     Dates: start: 201410, end: 201412
  2. ELMIRON [Suspect]
     Active Substance: PENTOSAN POLYSULFATE SODIUM
     Route: 048
     Dates: start: 201604, end: 201803
  3. PREDNISONE [Concomitant]
     Active Substance: PREDNISONE
     Indication: Pain management
     Dates: start: 201702, end: 201703
  4. BUSPIRONE HCL [Concomitant]
     Active Substance: BUSPIRONE HYDROCHLORIDE
     Indication: Anxiety
     Dates: start: 201601, end: 202005
  5. ORPHENADRINE [Concomitant]
     Active Substance: ORPHENADRINE
     Indication: Pain management
     Dates: start: 201608, end: 202007
  6. JANUVIA [Concomitant]
     Active Substance: SITAGLIPTIN PHOSPHATE
     Indication: Diabetes mellitus
     Dates: start: 201601, end: 201905
  7. DULOXETINE HYDROCHLORIDE [Concomitant]
     Active Substance: DULOXETINE HYDROCHLORIDE
     Indication: Anxiety
     Dates: start: 201703, end: 201710
  8. APRISO [Concomitant]
     Active Substance: MESALAMINE
     Dates: start: 201703, end: 202005
  9. SULFAMETHOXAZOLE [Concomitant]
     Active Substance: SULFAMETHOXAZOLE
     Indication: Infection
     Dates: start: 201702, end: 201703
  10. CHOLESTYRAMINE [Concomitant]
     Active Substance: CHOLESTYRAMINE
     Indication: Hypercholesterolaemia
     Dates: start: 201512, end: 201803
  11. LIALDA [Concomitant]
     Active Substance: MESALAMINE
     Dates: start: 201511, end: 201902
  12. ALENDRONATE SODIUM [Concomitant]
     Active Substance: ALENDRONATE SODIUM
     Dates: start: 201608, end: 202007
  13. OMEPRAZOLE [Concomitant]
     Active Substance: OMEPRAZOLE
     Indication: Dyspepsia
     Dates: start: 201602, end: 201807
  14. BUPROPION HYDROCHLORIDE [Concomitant]
     Active Substance: BUPROPION HYDROCHLORIDE
     Indication: Antidepressant therapy
     Dates: start: 201703, end: 202005
  15. TRAMADOL [Concomitant]
     Active Substance: TRAMADOL
     Indication: Pain management
     Dates: start: 201703, end: 202005
  16. DICLOFENAC SODIUM [Concomitant]
     Active Substance: DICLOFENAC SODIUM
     Indication: Pain management
     Dates: start: 201703, end: 202005
  17. LYRICA [Concomitant]
     Active Substance: PREGABALIN
     Indication: Pain management
     Dates: start: 201703, end: 201709
  18. VALIUM [Concomitant]
     Active Substance: DIAZEPAM
     Indication: Anxiety
     Dates: start: 201702, end: 201904
  19. TERAZOSIN [Concomitant]
     Active Substance: TERAZOSIN HYDROCHLORIDE
     Dates: start: 201703, end: 201910

REACTIONS (2)
  - Neovascular age-related macular degeneration [Not Recovered/Not Resolved]
  - Retinal depigmentation [Not Recovered/Not Resolved]

NARRATIVE: CASE EVENT DATE: 20170301
